FAERS Safety Report 8596823-8 (Version None)
Quarter: 2012Q3

REPORT INFORMATION
  Report Type: 
  Country: None (occurrence: None)
  Receive Date: 20120815
  Receipt Date: 20120808
  Transmission Date: 20120928
  Serious: Yes (Other)
  Sender: FDA-Public Use
  Company Number: CA-JNJFOC-20120603159

PATIENT
  Sex: Female
  Weight: 105 kg

DRUGS (2)
  1. CORTICOSTEROIDS [Concomitant]
     Route: 061
  2. USTEKINUMAB [Suspect]
     Indication: PSORIASIS
     Dates: start: 20101201, end: 20101201

REACTIONS (1)
  - OVARIAN CANCER [None]
